FAERS Safety Report 8373238-9 (Version None)
Quarter: 2012Q2

REPORT INFORMATION
  Report Type: 
  Country: None (occurrence: None)
  Receive Date: 20120521
  Receipt Date: 20120515
  Transmission Date: 20120825
  Serious: Yes (Hospitalization)
  Sender: FDA-Public Use
  Company Number: US-BAYER-2011-122469

PATIENT
  Age: 43 Year
  Sex: Female
  Weight: 87.528 kg

DRUGS (3)
  1. YAZ [Suspect]
     Indication: PREMENSTRUAL SYNDROME
     Dosage: UNK
     Route: 048
     Dates: start: 20060101, end: 20090101
  2. CYMBALTA [Concomitant]
     Indication: DEPRESSION
     Dosage: 20 MG, QD
     Dates: start: 20050101
  3. YAZ [Suspect]
     Indication: MENSTRUAL CYCLE MANAGEMENT

REACTIONS (9)
  - ABDOMINAL PAIN [None]
  - GALLBLADDER DISORDER [None]
  - GENERAL PHYSICAL HEALTH DETERIORATION [None]
  - CHOLECYSTITIS ACUTE [None]
  - ANXIETY [None]
  - ANHEDONIA [None]
  - PAIN [None]
  - DYSPEPSIA [None]
  - EMOTIONAL DISTRESS [None]
